FAERS Safety Report 7859917-8 (Version None)
Quarter: 2011Q4

REPORT INFORMATION
  Report Type: 
  Country: None (occurrence: None)
  Receive Date: 20111027
  Receipt Date: 20111017
  Transmission Date: 20120403
  Serious: Yes (Other)
  Sender: FDA-Public Use
  Company Number: US-CELGENEUS-163-21880-11101983

PATIENT
  Sex: Female
  Weight: 65.3 kg

DRUGS (1)
  1. REVLIMID [Suspect]
     Route: 048
     Dates: start: 20090817, end: 20110110

REACTIONS (2)
  - THROMBOCYTOSIS [None]
  - RECTAL CANCER [None]
